FAERS Safety Report 8826202 (Version 3)
Quarter: 2012Q4

REPORT INFORMATION
  Report Type: Report from Study
  Country: BE (occurrence: BE)
  Receive Date: 20121005
  Receipt Date: 20121031
  Transmission Date: 20130627
  Serious: No
  Sender: FDA-Public Use
  Company Number: BE-ROCHE-1137871

PATIENT
  Age: 77 Year
  Sex: Female

DRUGS (9)
  1. RANIBIZUMAB [Suspect]
     Indication: RETINAL VEIN OCCLUSION
     Route: 050
     Dates: start: 20120205
  2. RANIBIZUMAB [Suspect]
     Route: 050
     Dates: start: 20120308
  3. RANIBIZUMAB [Suspect]
     Route: 050
     Dates: start: 20120412
  4. RANIBIZUMAB [Suspect]
     Route: 050
     Dates: start: 20120601
  5. RANIBIZUMAB [Suspect]
     Route: 050
     Dates: start: 20120629
  6. RANIBIZUMAB [Suspect]
     Route: 050
     Dates: start: 20120727, end: 20120920
  7. ASAFLOW [Concomitant]
  8. AMLODIPINE [Concomitant]
  9. LORATADINE [Concomitant]

REACTIONS (2)
  - Drug ineffective [Unknown]
  - Visual acuity reduced [Not Recovered/Not Resolved]
